FAERS Safety Report 11230895 (Version 1)
Quarter: 2015Q3

REPORT INFORMATION
  Report Type: Report from Study
  Country: US (occurrence: US)
  Receive Date: 20150701
  Receipt Date: 20150701
  Transmission Date: 20151125
  Serious: Yes (Hospitalization)
  Sender: FDA-Public Use
  Company Number: US-BIOGENIDEC-2015BI083758

PATIENT
  Sex: Female

DRUGS (1)
  1. AVONEX [Suspect]
     Active Substance: INTERFERON BETA-1A
     Indication: MULTIPLE SCLEROSIS
     Route: 030
     Dates: start: 20020601, end: 2015

REACTIONS (4)
  - Asthenia [Not Recovered/Not Resolved]
  - Panic attack [Recovered/Resolved]
  - Eye movement disorder [Recovered/Resolved]
  - Facial asymmetry [Recovered/Resolved]
